FAERS Safety Report 18123451 (Version 1)
Quarter: 2020Q3

REPORT INFORMATION
  Report Type: Spontaneous
  Country: US (occurrence: US)
  Receive Date: 20200807
  Receipt Date: 20200807
  Transmission Date: 20201103
  Serious: No
  Sender: FDA-Public Use
  Company Number: None

PATIENT
  Age: 26 Year
  Sex: Female
  Weight: 81 kg

DRUGS (4)
  1. DAY QUIL [Concomitant]
  2. ZICAM COLD REMEDY NASAL SWABS (HOMEOPATHICS) [Concomitant]
     Active Substance: HOMEOPATHICS\ZINC ACETATE\ZINC GLUCONATE
  3. ZICAM (HOMEOPATHICS) [Suspect]
     Active Substance: HOMEOPATHICS
     Indication: NASOPHARYNGITIS
     Dosage: QUANTITY: 1 TUBE?
     Route: 045
     Dates: start: 20200714, end: 20200804
  4. NIGHTQUIL [Concomitant]

REACTIONS (3)
  - Ageusia [None]
  - Anosmia [None]
  - Recalled product administered [None]

NARRATIVE: CASE EVENT DATE: 20200806
